FAERS Safety Report 5940426-8 (Version None)
Quarter: 2008Q4

REPORT INFORMATION
  Report Type: 
  Country: None (occurrence: None)
  Receive Date: 20081104
  Receipt Date: 20081029
  Transmission Date: 20090506
  Serious: Yes (Death, Hospitalization)
  Sender: FDA-Public Use
  Company Number: PHHO2008US08716

PATIENT
  Sex: Male

DRUGS (15)
  1. DICLOFENAC [Suspect]
     Dosage: UNK
  2. ACETAMINOPHEN [Suspect]
     Dosage: UNK
  3. ERLOTINIB [Concomitant]
     Indication: NON-SMALL CELL LUNG CANCER
     Dosage: 150 MG, QD
     Dates: start: 20080609, end: 20080620
  4. DEXCHLORPHENIRAMINE MALEATE [Concomitant]
  5. MOVICOLON [Concomitant]
  6. GABAPENTIN [Concomitant]
  7. DURAGESIC-100 [Concomitant]
  8. OXYNORM [Concomitant]
  9. NITROGLYCERIN [Concomitant]
  10. OMEPRAZOLE [Concomitant]
  11. PREDNISONE TAB [Concomitant]
  12. PALLADONE [Concomitant]
  13. NITRAZEPAM [Concomitant]
  14. OXAZEPAM [Concomitant]
  15. MORPHINE [Concomitant]

REACTIONS (1)
  - ACUTE ABDOMEN [None]
